FAERS Safety Report 21112841 (Version 2)
Quarter: 2022Q4

REPORT INFORMATION
  Report Type: Spontaneous
  Country: MX (occurrence: MX)
  Receive Date: 20220721
  Receipt Date: 20221201
  Transmission Date: 20230112
  Serious: Yes (Other)
  Sender: FDA-Public Use
  Company Number: MX-PFIZER INC-PV202200026909

PATIENT
  Age: 66 Year
  Sex: Female
  Weight: 62 kg

DRUGS (3)
  1. IBRANCE [Suspect]
     Active Substance: PALBOCICLIB
     Indication: Lung neoplasm malignant
     Dosage: 125 MG, 1X/DAY
     Route: 048
     Dates: start: 202204, end: 202205
  2. IBRANCE [Suspect]
     Active Substance: PALBOCICLIB
     Indication: Hepatic cancer
     Dosage: 120 MG, 1X/DAY
     Route: 048
     Dates: start: 202206, end: 202207
  3. IBRANCE [Suspect]
     Active Substance: PALBOCICLIB
     Dosage: 100 MG, 1X/DAY
     Route: 048

REACTIONS (4)
  - Haematotoxicity [Recovering/Resolving]
  - Weight decreased [Recovering/Resolving]
  - Decreased appetite [Recovering/Resolving]
  - Off label use [Unknown]

NARRATIVE: CASE EVENT DATE: 20220601
